FAERS Safety Report 8876109 (Version 1)
Quarter: 2012Q4

REPORT INFORMATION
  Report Type: 
  Country: US (occurrence: US)
  Receive Date: 20121030
  Receipt Date: 20121030
  Transmission Date: 20130627
  Serious: Yes (Other)
  Sender: FDA-Public Use
  Company Number: US-UCBSA-069756

PATIENT
  Age: 11 Month
  Sex: Female

DRUGS (5)
  1. KEPPRA [Suspect]
     Dates: start: 2012, end: 2012
  2. KEPPRA [Suspect]
     Dosage: UNKNOWN DOSE
     Dates: start: 2012
  3. SABRIL [Suspect]
     Indication: INFANTILE SPASMS
     Route: 048
     Dates: start: 20121006, end: 201210
  4. KLONOPIN [Suspect]
     Dates: start: 2012
  5. TOPAMAX [Suspect]

REACTIONS (5)
  - Infantile spasms [Unknown]
  - Dyskinesia [Unknown]
  - Listless [Unknown]
  - Eating disorder [Recovering/Resolving]
  - Hypotonia [Recovering/Resolving]
